FAERS Safety Report 23968421 (Version 2)
Quarter: 2024Q3

REPORT INFORMATION
  Report Type: Spontaneous
  Country: US (occurrence: US)
  Receive Date: 20240612
  Receipt Date: 20240923
  Transmission Date: 20241017
  Serious: No
  Sender: PFIZER
  Company Number: US-PFIZER INC-PV202400076522

PATIENT
  Age: 84 Year
  Sex: Female

DRUGS (4)
  1. IBRANCE [Suspect]
     Active Substance: PALBOCICLIB
     Indication: Invasive ductal breast carcinoma
     Dosage: 125 MG
  2. IBRANCE [Suspect]
     Active Substance: PALBOCICLIB
     Dosage: 100 MG, CYCLIC (21 DAYS FOLLOWED BY 7 DAYS OFF)
     Route: 048
     Dates: start: 20240610, end: 2024
  3. IBRANCE [Suspect]
     Active Substance: PALBOCICLIB
     Dosage: 75 MG, CYCLIC (ONCE DAILY FOR 21 DAYS, FOLLOWED BY 7 DAYS OFF)
     Route: 048
     Dates: start: 20240918
  4. ARIMIDEX [Concomitant]
     Active Substance: ANASTROZOLE
     Indication: Invasive ductal breast carcinoma

REACTIONS (1)
  - Toxicity to various agents [Unknown]
